FAERS Safety Report 9071297 (Version 6)
Quarter: 2015Q2

REPORT INFORMATION
  Report Type: Report from Study
  Country: JP (occurrence: JP)
  Receive Date: 20130129
  Receipt Date: 20150622
  Transmission Date: 20150821
  Serious: Yes (Other)
  Sender: FDA-Public Use
  Company Number: JP-GILEAD-2013-0068653

PATIENT
  Age: 55 Year
  Sex: Male

DRUGS (15)
  1. AMBRISENTAN [Suspect]
     Active Substance: AMBRISENTAN
     Indication: PULMONARY ARTERIAL HYPERTENSION
     Dosage: 5 MG, QD
     Route: 048
     Dates: start: 20110928, end: 20130109
  2. AMBRISENTAN [Suspect]
     Active Substance: AMBRISENTAN
     Dosage: 7.5 MG, QD
     Route: 048
     Dates: start: 20130110
  3. MUCODYNE [Concomitant]
     Active Substance: CARBOCYSTEINE
     Route: 048
  4. TOYOFAROL [Concomitant]
     Active Substance: ALFACALCIDOL
     Indication: PROPHYLAXIS
     Dosage: UNK
     Route: 048
  5. TOYOFAROL [Concomitant]
     Active Substance: ALFACALCIDOL
     Route: 048
  6. PREDONINE [Suspect]
     Active Substance: PREDNISOLONE\PREDNISOLONE ACETATE\PREDNISOLONE SODIUM SUCCINATE
     Indication: PRODUCT USED FOR UNKNOWN INDICATION
     Dosage: UNK
     Route: 048
  7. HYPEN                              /00613801/ [Concomitant]
     Active Substance: ETODOLAC
     Dosage: UNK
     Route: 048
  8. CATLEP [Concomitant]
     Active Substance: INDOMETHACIN
     Dosage: UNK
     Route: 062
     Dates: end: 20130213
  9. GRIMAC [Concomitant]
     Indication: PROPHYLAXIS AGAINST GASTROINTESTINAL ULCER
     Dosage: UNK
     Route: 048
  10. SULFAMETHOXAZOLE AND TRIMETHOPRIM [Concomitant]
     Active Substance: SULFAMETHOXAZOLE\TRIMETHOPRIM
     Indication: PROPHYLAXIS
     Dosage: UNK
     Route: 048
  11. ADCIRCA [Suspect]
     Active Substance: TADALAFIL
     Indication: PULMONARY ARTERIAL HYPERTENSION
     Dosage: UNK
     Route: 048
  12. PROGRAF [Concomitant]
     Active Substance: TACROLIMUS\TACROLIMUS ANHYDROUS
     Dosage: UNK
     Route: 048
  13. BERASUS [Suspect]
     Active Substance: BERAPROST SODIUM
     Indication: PULMONARY ARTERIAL HYPERTENSION
     Dosage: UNK
     Route: 048
  14. TAKEPRON [Concomitant]
     Active Substance: LANSOPRAZOLE
     Indication: PROPHYLAXIS
     Dosage: UNK
     Route: 048
  15. CATLEP [Concomitant]
     Active Substance: INDOMETHACIN
     Dosage: UNK
     Route: 062
     Dates: start: 20140401

REACTIONS (5)
  - Pruritus [Recovered/Resolved]
  - Flushing [Recovered/Resolved]
  - Epistaxis [Recovered/Resolved]
  - Haematochezia [Recovered/Resolved]
  - White blood cell count increased [Recovered/Resolved]

NARRATIVE: CASE EVENT DATE: 20110928
